FAERS Safety Report 9012699 (Version 1)
Quarter: 2013Q1

REPORT INFORMATION
  Report Type: Report from Study
  Country: US (occurrence: US)
  Receive Date: 20130114
  Receipt Date: 20130114
  Transmission Date: 20140127
  Serious: Yes (Hospitalization)
  Sender: FDA-Public Use
  Company Number: US-ROCHE-1178274

PATIENT
  Age: 84 None
  Sex: Female

DRUGS (1)
  1. LUCENTIS [Suspect]
     Indication: AGE-RELATED MACULAR DEGENERATION
     Route: 050
     Dates: start: 20070717

REACTIONS (4)
  - Cardiac failure congestive [Unknown]
  - Intraocular pressure increased [Unknown]
  - Vision blurred [Unknown]
  - Headache [Unknown]
